FAERS Safety Report 9344699 (Version 1)
Quarter: 2013Q2

REPORT INFORMATION
  Report Type: Spontaneous
  Country: US (occurrence: US)
  Receive Date: 20130612
  Receipt Date: 20130612
  Transmission Date: 20140414
  Serious: Yes (Other)
  Sender: FDA-Public Use
  Company Number: US-BAYER-2013-072227

PATIENT
  Age: 57 Year
  Sex: Male
  Weight: 104.31 kg

DRUGS (3)
  1. ALEVE TABLET [Suspect]
     Indication: ARTHRITIS
     Dosage: 2 DF, PRN
     Route: 048
     Dates: start: 2012, end: 201305
  2. ONE A DAY MEN^S 50+ HEALTHY ADVANTAGE [Concomitant]
  3. SAW PALMETTO [Concomitant]

REACTIONS (1)
  - Peptic ulcer haemorrhage [Recovered/Resolved]
